FAERS Safety Report 17264753 (Version 1)
Quarter: 2020Q1

REPORT INFORMATION
  Report Type: Report from Study
  Country: CA (occurrence: CA)
  Receive Date: 20200113
  Receipt Date: 20200113
  Transmission Date: 20200409
  Serious: Yes (Hospitalization, Other)
  Sender: FDA-Public Use
  Company Number: CA-PFIZER INC-2020009114

PATIENT
  Age: 32 Year
  Sex: Female

DRUGS (7)
  1. COSENTYX [Suspect]
     Active Substance: SECUKINUMAB
     Indication: PSORIASIS
     Dosage: 300 MG, WEEKLY
     Route: 058
  2. BETAMETHASONE DIPROPIONATE/CALCIPOTRIOL [Concomitant]
  3. COSENTYX [Suspect]
     Active Substance: SECUKINUMAB
     Dosage: 300 MG, MONTHLY
     Route: 058
  4. DOVONEX [Concomitant]
     Active Substance: CALCIPOTRIENE
  5. METHOTREXATE SODIUM. [Suspect]
     Active Substance: METHOTREXATE SODIUM
     Dosage: UNK
  6. CICLOSPORIN [Suspect]
     Active Substance: CYCLOSPORINE
  7. ACITRETIN. [Concomitant]
     Active Substance: ACITRETIN

REACTIONS (26)
  - Blister [Recovered/Resolved]
  - Respiratory disorder [Recovered/Resolved]
  - Ill-defined disorder [Recovered/Resolved]
  - Metrorrhagia [Recovered/Resolved]
  - Oral pain [Recovered/Resolved]
  - Pneumonia [Recovered/Resolved]
  - Pruritus [Recovered/Resolved]
  - Therapeutic response shortened [Recovered/Resolved]
  - Dyspnoea [Recovered/Resolved]
  - Menstruation delayed [Recovered/Resolved]
  - Stomatitis [Recovered/Resolved]
  - Injection site pain [Recovered/Resolved]
  - Malaise [Recovered/Resolved]
  - Nasal congestion [Recovered/Resolved]
  - Oral candidiasis [Recovered/Resolved]
  - Glossitis [Recovered/Resolved]
  - Oropharyngeal pain [Recovered/Resolved]
  - Psoriasis [Recovered/Resolved]
  - Rhinorrhoea [Recovered/Resolved]
  - Chest discomfort [Recovered/Resolved]
  - Chest pain [Recovered/Resolved]
  - Fungal infection [Recovered/Resolved]
  - Nasal discomfort [Recovered/Resolved]
  - Throat irritation [Recovered/Resolved]
  - Uterine leiomyoma [Recovered/Resolved]
  - Wheezing [Recovered/Resolved]
